FAERS Safety Report 7990707-1 (Version None)
Quarter: 2011Q4

REPORT INFORMATION
  Report Type: 
  Country: None (occurrence: None)
  Receive Date: 20111219
  Receipt Date: 20111219
  Transmission Date: 20120403
  Serious: Yes (Other)
  Sender: FDA-Public Use
  Company Number: None

PATIENT
  Age: 63 Year
  Sex: Female
  Weight: 81.646 kg

DRUGS (6)
  1. PRAVASTATIN [Concomitant]
     Route: 048
  2. VERAPAMIL [Concomitant]
     Route: 048
  3. MIACALCIN [Suspect]
     Indication: OSTEOPENIA
     Dosage: 1 SPRAY
     Route: 045
  4. WARFARIN SODIUM [Concomitant]
     Route: 048
  5. MACRODANTIN [Concomitant]
     Route: 048
  6. HYDROCHLOROTHIAZIDE [Concomitant]
     Route: 048

REACTIONS (1)
  - ENDODONTIC PROCEDURE [None]
